FAERS Safety Report 25653084 (Version 1)
Quarter: 2025Q3

REPORT INFORMATION
  Report Type: Spontaneous
  Country: US (occurrence: US)
  Receive Date: 20250807
  Receipt Date: 20250807
  Transmission Date: 20251021
  Serious: No
  Sender: RECKITT BENCKISER
  Company Number: US-PROD-AS2-212756134-20-24-USA-RB-0005316

PATIENT
  Age: 88 Year
  Sex: Female

DRUGS (3)
  1. MUCINEX [Suspect]
     Active Substance: GUAIFENESIN
     Indication: Asthma
     Route: 048
     Dates: start: 20240706
  2. MUCINEX [Suspect]
     Active Substance: GUAIFENESIN
     Indication: COVID-19
  3. FLUTICASONE [Suspect]
     Active Substance: FLUTICASONE
     Indication: Asthma

REACTIONS (1)
  - Incorrect product administration duration [Unknown]

NARRATIVE: CASE EVENT DATE: 20240706
